FAERS Safety Report 19039886 (Version 1)
Quarter: 2021Q1

REPORT INFORMATION
  Report Type: Spontaneous
  Country: FR (occurrence: FR)
  Receive Date: 20210323
  Receipt Date: 20210323
  Transmission Date: 20210420
  Serious: Yes (Hospitalization)
  Sender: FDA-Public Use
  Company Number: FR-JNJFOC-20210340923

PATIENT
  Age: 95 Year
  Sex: Male

DRUGS (5)
  1. FUROSEMIDE. [Concomitant]
     Active Substance: FUROSEMIDE
     Route: 048
  2. AMIODARONE [Concomitant]
     Active Substance: AMIODARONE
     Route: 048
  3. DUROGESIC [Suspect]
     Active Substance: FENTANYL
     Indication: SPINAL PAIN
     Route: 062
     Dates: start: 20210108, end: 20210110
  4. CLAMOXYL [Concomitant]
     Route: 048
     Dates: start: 20210108, end: 20210110
  5. PREVISCAN [Concomitant]
     Route: 048

REACTIONS (4)
  - Respiratory distress [Recovering/Resolving]
  - Medication error [Recovered/Resolved]
  - Incorrect dosage administered [Recovered/Resolved]
  - Somnolence [Recovering/Resolving]

NARRATIVE: CASE EVENT DATE: 20210108
